FAERS Safety Report 11992494 (Version 1)
Quarter: 2016Q1

REPORT INFORMATION
  Report Type: Report from Study
  Country: US (occurrence: US)
  Receive Date: 20160203
  Receipt Date: 20160203
  Transmission Date: 20160526
  Serious: No
  Sender: FDA-Public Use
  Company Number: PHEH2016US001723

PATIENT
  Age: 47 Year
  Sex: Male

DRUGS (1)
  1. COSENTYX [Suspect]
     Active Substance: SECUKINUMAB
     Indication: PSORIASIS
     Dosage: 300 MG, QW
     Route: 058
     Dates: start: 20160113

REACTIONS (5)
  - Noninfective sialoadenitis [Not Recovered/Not Resolved]
  - Parotid gland enlargement [Unknown]
  - Salivary gland pain [Not Recovered/Not Resolved]
  - Tenderness [Unknown]
  - Local swelling [Unknown]

NARRATIVE: CASE EVENT DATE: 20160116
